FAERS Safety Report 10913209 (Version 1)
Quarter: 2015Q1

REPORT INFORMATION
  Report Type: Spontaneous
  Country: IT (occurrence: IT)
  Receive Date: 20150313
  Receipt Date: 20150313
  Transmission Date: 20150721
  Serious: Yes (Hospitalization)
  Sender: FDA-Public Use
  Company Number: IT-TEVA-547020ACC

PATIENT
  Age: 59 Year

DRUGS (2)
  1. RAMIPRIL ABC - ABC FARMACEUTICI S.P.A. [Suspect]
     Active Substance: RAMIPRIL
     Indication: ESSENTIAL HYPERTENSION
     Dosage: DAILY
     Route: 048
     Dates: start: 20140101, end: 20150210
  2. FUROSEMIDE. [Suspect]
     Active Substance: FUROSEMIDE
     Indication: PRODUCT USED FOR UNKNOWN INDICATION
     Dosage: DAILY
     Route: 048
     Dates: start: 20140101, end: 20150210

REACTIONS (3)
  - Hypovolaemic shock [Recovered/Resolved]
  - Medication error [Unknown]
  - Hypotension [Recovered/Resolved]

NARRATIVE: CASE EVENT DATE: 20150210
